FAERS Safety Report 16892779 (Version 2)
Quarter: 2019Q4

REPORT INFORMATION
  Report Type: Report from Study
  Country: US (occurrence: US)
  Receive Date: 20191007
  Receipt Date: 20191021
  Transmission Date: 20200122
  Serious: Yes (Hospitalization)
  Sender: FDA-Public Use
  Company Number: US-BRISTOL-MYERS SQUIBB COMPANY-BMS-2019-093619

PATIENT
  Age: 57 Year
  Sex: Male

DRUGS (12)
  1. ZYFLAMEND [Concomitant]
     Indication: SUPPLEMENTATION THERAPY
     Dosage: 1 DOSAGE FORM, QD
     Route: 048
     Dates: start: 20190423
  2. BENADRYL A [Concomitant]
     Active Substance: DIPHENHYDRAMINE HYDROCHLORIDE
     Indication: PROPHYLAXIS
     Dosage: 50 MILLIGRAM, SINGLE
     Route: 042
     Dates: start: 20190830, end: 20190830
  3. ACETAMINOPHEN. [Concomitant]
     Active Substance: ACETAMINOPHEN
     Indication: PROPHYLAXIS
     Dosage: 325 MILLIGRAM, SINGLE
     Route: 048
     Dates: start: 20190830, end: 20190830
  4. SYNTHROID [Concomitant]
     Active Substance: LEVOTHYROXINE SODIUM
     Indication: HYPOTHYROIDISM
     Dosage: 100 MICROGRAM, QD
     Route: 048
     Dates: start: 20190919
  5. METHYLPREDNISOLONE. [Concomitant]
     Active Substance: METHYLPREDNISOLONE
     Indication: PRODUCT USED FOR UNKNOWN INDICATION
     Dosage: 4 MILLIGRAM
     Route: 065
     Dates: start: 20190919
  6. CANNABIDIOL [Concomitant]
     Active Substance: CANNABIDIOL
     Indication: SUPPLEMENTATION THERAPY
     Dosage: 1 DOSAGE FORM, QD
     Route: 048
     Dates: start: 20190423
  7. NIVOLUMAB [Suspect]
     Active Substance: NIVOLUMAB
     Indication: RENAL CELL CARCINOMA
     Dosage: 360 MILLIGRAM, Q3WK
     Route: 042
     Dates: start: 20190719
  8. MULTIVITAMIN AND MINERAL SUPPLEMENT [Concomitant]
     Active Substance: MINERALS\VITAMINS
     Indication: SUPPLEMENTATION THERAPY
     Dosage: 1 DOSAGE FORM, QD
     Route: 048
     Dates: start: 20190423
  9. HOMOCYSTEINE FORMULA [Concomitant]
     Indication: FOLATE DEFICIENCY
     Dosage: 1 DOSAGE FORM, QD
     Route: 048
     Dates: start: 2005
  10. BEMPEGALDESLEUKIN [Suspect]
     Active Substance: BEMPEGALDESLEUKIN
     Indication: RENAL CELL CARCINOMA
     Dosage: 0.006 MILLIGRAM/KILOGRAM, Q3WK
     Route: 042
     Dates: start: 20190719
  11. XARELTO [Concomitant]
     Active Substance: RIVAROXABAN
     Indication: SUPPLEMENTATION THERAPY
     Dosage: 20 MILLIGRAM, QD
     Route: 048
     Dates: start: 2016
  12. FRANKINCENSE [Concomitant]
     Indication: SUPPLEMENTATION THERAPY
     Dosage: 1 DOSAGE FORM, QD
     Route: 048
     Dates: start: 20190423

REACTIONS (1)
  - Blood creatine phosphokinase increased [Recovered/Resolved]

NARRATIVE: CASE EVENT DATE: 20190924
